FAERS Safety Report 7801392-3 (Version None)
Quarter: 2011Q4

REPORT INFORMATION
  Report Type: 
  Country: None (occurrence: None)
  Receive Date: 20111007
  Receipt Date: 20110926
  Transmission Date: 20120403
  Serious: Yes (Other)
  Sender: FDA-Public Use
  Company Number: US-BAYER-2011-028250

PATIENT
  Age: 19 Year
  Sex: Female
  Weight: 104 kg

DRUGS (7)
  1. ALBUTEROL SULFATE [Concomitant]
     Indication: PREMENSTRUAL SYNDROME
     Dosage: UNK
     Dates: start: 20080101, end: 20090101
  2. YAZ [Suspect]
     Indication: PREMENSTRUAL SYNDROME
     Dosage: UNK
     Dates: start: 20080101, end: 20090101
  3. NEXIUM [Concomitant]
  4. ALBUTEROL SULFATE [Concomitant]
  5. SINGULAIR [Concomitant]
  6. YAZ [Suspect]
  7. IBUPROFEN [Concomitant]

REACTIONS (8)
  - GALLBLADDER DISORDER [None]
  - ANHEDONIA [None]
  - PAIN [None]
  - DECREASED APPETITE [None]
  - EMOTIONAL DISTRESS [None]
  - NAUSEA [None]
  - ABDOMINAL PAIN UPPER [None]
  - VOMITING [None]
